FAERS Safety Report 8500733-1 (Version None)
Quarter: 2012Q3

REPORT INFORMATION
  Report Type: 
  Country: None (occurrence: None)
  Receive Date: 20120710
  Receipt Date: 20120705
  Transmission Date: 20120928
  Serious: Yes (Other)
  Sender: FDA-Public Use
  Company Number: US-TEVA-346913USA

PATIENT
  Sex: Male

DRUGS (8)
  1. METOPROLOL [Concomitant]
     Route: 048
  2. FLOMAX [Concomitant]
     Indication: ASTHMA
     Route: 055
  3. AVODART [Concomitant]
     Indication: BENIGN PROSTATIC HYPERPLASIA
     Route: 048
  4. MULTI-VITAMIN [Concomitant]
     Dosage: 1 TABLET
     Route: 048
  5. CARBIDOPA + LEVODOPA [Concomitant]
     Indication: PARKINSON'S DISEASE
     Route: 048
  6. AZILECT [Concomitant]
     Indication: PARKINSON'S DISEASE
     Route: 048
  7. VITAMIN D [Concomitant]
     Route: 048
  8. PROAIR HFA [Suspect]
     Indication: ASTHMA
     Dosage: 90 MCG, 4 TIMES DAILY AS NEEDED
     Route: 055

REACTIONS (2)
  - DRUG DEPENDENCE [None]
  - INTENTIONAL DRUG MISUSE [None]
